FAERS Safety Report 23342123 (Version 1)
Quarter: 2023Q4

REPORT INFORMATION
  Report Type: Spontaneous
  Country: AU (occurrence: AU)
  Receive Date: 20231227
  Receipt Date: 20231227
  Transmission Date: 20240109
  Serious: Yes (Other)
  Sender: FDA-Public Use
  Company Number: AU-Zuellig Korea-ATNAHS20231203860

PATIENT
  Age: 35 Year
  Sex: Male

DRUGS (15)
  1. DIAZEPAM [Suspect]
     Active Substance: DIAZEPAM
     Indication: Product used for unknown indication
  2. CARIPRAZINE [Suspect]
     Active Substance: CARIPRAZINE
     Indication: Product used for unknown indication
  3. ARIPIPRAZOLE [Suspect]
     Active Substance: ARIPIPRAZOLE
     Indication: Product used for unknown indication
  4. AMISULPRIDE [Suspect]
     Active Substance: AMISULPRIDE
     Indication: Product used for unknown indication
  5. BREXPIPRAZOLE [Suspect]
     Active Substance: BREXPIPRAZOLE
     Indication: Product used for unknown indication
  6. CHLORPROMAZINE HYDROCHLORIDE [Suspect]
     Active Substance: CHLORPROMAZINE HYDROCHLORIDE
     Indication: Product used for unknown indication
  7. CLOZAPINE [Suspect]
     Active Substance: CLOZAPINE
     Indication: Product used for unknown indication
  8. ACETAMINOPHEN [Suspect]
     Active Substance: ACETAMINOPHEN
     Indication: Product used for unknown indication
  9. QUETIAPINE FUMARATE [Suspect]
     Active Substance: QUETIAPINE FUMARATE
     Indication: Product used for unknown indication
  10. RISPERIDONE [Suspect]
     Active Substance: RISPERIDONE
     Indication: Product used for unknown indication
  11. VALPROATE SODIUM [Suspect]
     Active Substance: VALPROATE SODIUM
     Indication: Product used for unknown indication
  12. VENLAFAXINE HYDROCHLORIDE [Suspect]
     Active Substance: VENLAFAXINE HYDROCHLORIDE
     Indication: Product used for unknown indication
  13. ZIPRASIDONE [Suspect]
     Active Substance: ZIPRASIDONE
     Indication: Product used for unknown indication
  14. ZOPICLONE [Suspect]
     Active Substance: ZOPICLONE
     Indication: Product used for unknown indication
  15. ZUCLOPENTHIXOL ACETATE [Suspect]
     Active Substance: ZUCLOPENTHIXOL ACETATE
     Indication: Product used for unknown indication

REACTIONS (29)
  - Hallucination, auditory [Unknown]
  - Hallucination, tactile [Unknown]
  - Hallucination, visual [Unknown]
  - Hallucinations, mixed [Unknown]
  - Intentional self-injury [Unknown]
  - Myocarditis [Unknown]
  - Intracranial pressure increased [Unknown]
  - Schizoaffective disorder [Unknown]
  - Suicide attempt [Unknown]
  - Suicidal ideation [Unknown]
  - Antipsychotic drug level increased [Unknown]
  - C-reactive protein increased [Unknown]
  - Chest discomfort [Unknown]
  - Delusion [Unknown]
  - Extrapyramidal disorder [Unknown]
  - Gynaecomastia [Unknown]
  - Hyperhidrosis [Unknown]
  - Malaise [Unknown]
  - Orthostatic hypotension [Unknown]
  - Persecutory delusion [Unknown]
  - Psychotic disorder [Unknown]
  - Social anxiety disorder [Unknown]
  - Spasmodic dysphonia [Unknown]
  - Tachycardia [Unknown]
  - Troponin increased [Unknown]
  - White blood cell count increased [Unknown]
  - Alcohol abuse [Unknown]
  - Drug ineffective [Unknown]
  - Overdose [Unknown]
